FAERS Safety Report 9665005 (Version 7)
Quarter: 2014Q4

REPORT INFORMATION
  Report Type: Report from Study
  Country: US (occurrence: US)
  Receive Date: 20131101
  Receipt Date: 20141113
  Transmission Date: 20150529
  Serious: Yes (Hospitalization)
  Sender: FDA-Public Use
  Company Number: US-ACTELION-A-NJ2013-84322

PATIENT
  Age: 32 Year
  Sex: Male

DRUGS (4)
  1. VELETRI [Suspect]
     Active Substance: EPOPROSTENOL
     Indication: PULMONARY ARTERIAL HYPERTENSION
     Dosage: 48.4 NG/KG, PER MIN
     Route: 042
     Dates: start: 20110930
  2. VELETRI [Suspect]
     Active Substance: EPOPROSTENOL
     Dosage: 37.4 NG/KG, PER MIN
     Route: 042
     Dates: start: 20110929
  3. COUMADIN [Concomitant]
     Active Substance: WARFARIN SODIUM
  4. TRACLEER [Suspect]
     Active Substance: BOSENTAN\BOSENTAN MONOHYDRATE
     Indication: PULMONARY ARTERIAL HYPERTENSION
     Dosage: UNK
     Route: 048

REACTIONS (7)
  - Fluid retention [Not Recovered/Not Resolved]
  - Device failure [Recovering/Resolving]
  - Cardiac failure congestive [Recovering/Resolving]
  - Device damage [Recovering/Resolving]
  - Cough [Unknown]
  - Device issue [Unknown]
  - Disease complication [Recovering/Resolving]

NARRATIVE: CASE EVENT DATE: 20130515
